FAERS Safety Report 5303900-3 (Version None)
Quarter: 2007Q1

REPORT INFORMATION
  Report Type: 
  Country: None (occurrence: None)
  Receive Date: 20070201
  Receipt Date: 20061119
  Transmission Date: 20070707
  Serious: No
  Sender: FDA-Public Use
  Company Number: 2006PV025555

PATIENT
  Age: 53 Year
  Sex: Female
  Weight: 126.1 kg

DRUGS (6)
  1. BYETTA [Suspect]
     Indication: DIABETES MELLITUS NON-INSULIN-DEPENDENT
     Dosage: 5 MCG;BID;SC
     Route: 058
     Dates: start: 20061101
  2. METFORMIN HCL [Concomitant]
  3. NOVOLOG [Concomitant]
  4. NOVOLOG MIX 70/30 [Concomitant]
  5. LEVEMIR [Concomitant]
  6. AVANDIA [Concomitant]

REACTIONS (4)
  - DECREASED APPETITE [None]
  - INJECTION SITE PAIN [None]
  - NAUSEA [None]
  - WEIGHT DECREASED [None]
